FAERS Safety Report 18044197 (Version 1)
Quarter: 2020Q3

REPORT INFORMATION
  Report Type: Spontaneous
  Country: US (occurrence: US)
  Receive Date: 20200720
  Receipt Date: 20200720
  Transmission Date: 20201103
  Serious: Yes (Hospitalization, Disabling)
  Sender: FDA-Public Use
  Company Number: US-NOVOPROD-740604

PATIENT
  Age: 71 Year
  Sex: Male
  Weight: 92.99 kg

DRUGS (1)
  1. NOVOLIN 70/30 [Suspect]
     Active Substance: INSULIN HUMAN
     Indication: TYPE 2 DIABETES MELLITUS
     Dosage: 100 UNITS TWICE DAILY
     Route: 058

REACTIONS (3)
  - Dyspnoea [Not Recovered/Not Resolved]
  - Respiratory disorder [Not Recovered/Not Resolved]
  - Blood glucose increased [Not Recovered/Not Resolved]

NARRATIVE: CASE EVENT DATE: 2020
